FAERS Safety Report 4521591-6 (Version None)
Quarter: 2004Q4

REPORT INFORMATION
  Report Type: 
  Country: None (occurrence: None)
  Receive Date: 20041208
  Receipt Date: 20041208
  Transmission Date: 20050328
  Serious: Yes (Other)
  Sender: FDA-Public Use
  Company Number: None

PATIENT
  Age: 48 Year
  Sex: Male
  Weight: 95.709 kg

DRUGS (2)
  1. PAXIL CR [Suspect]
     Indication: DEPRESSION
     Dosage: 1        DAY    ORAL
     Route: 048
     Dates: start: 20010901, end: 20041012
  2. PAXIL CR [Suspect]
     Indication: GENERALISED ANXIETY DISORDER
     Dosage: 1        DAY    ORAL
     Route: 048
     Dates: start: 20010901, end: 20041012

REACTIONS (2)
  - ALCOHOL USE [None]
  - FEELING ABNORMAL [None]
